FAERS Safety Report 7065471-3 (Version None)
Quarter: 2010Q4

REPORT INFORMATION
  Report Type: 
  Country: None (occurrence: None)
  Receive Date: 20101027
  Receipt Date: 20101019
  Transmission Date: 20110411
  Serious: Yes (Other)
  Sender: FDA-Public Use
  Company Number: US-PFIZER INC-2010133031

PATIENT
  Sex: Female
  Weight: 77.098 kg

DRUGS (6)
  1. NEURONTIN [Suspect]
     Indication: HEADACHE
     Dosage: 100 MG DAILY, AT NIGHT
     Route: 048
     Dates: start: 20101012
  2. SYNTHROID [Concomitant]
     Indication: THYROID DISORDER
     Dosage: 88 UG
     Route: 048
  3. CRESTOR [Concomitant]
     Indication: BLOOD CHOLESTEROL INCREASED
     Dosage: 20 MG, 2X/WEEK
     Route: 048
  4. ACETAMINOPHEN [Concomitant]
     Indication: FIBROMYALGIA
     Dosage: UNK
  5. ACETYLSALICYLIC ACID [Concomitant]
     Indication: FIBROMYALGIA
     Dosage: UNK
  6. ADVIL [Concomitant]
     Indication: HEADACHE
     Dosage: UNK

REACTIONS (9)
  - DEPRESSED MOOD [None]
  - DRUG INEFFECTIVE [None]
  - DYSARTHRIA [None]
  - FATIGUE [None]
  - HALLUCINATION [None]
  - MEMORY IMPAIRMENT [None]
  - POLLAKIURIA [None]
  - POVERTY OF SPEECH [None]
  - SOMNOLENCE [None]
